FAERS Safety Report 20847937 (Version 1)
Quarter: 2022Q2

REPORT INFORMATION
  Report Type: Spontaneous
  Country: CA (occurrence: CA)
  Receive Date: 20220519
  Receipt Date: 20220519
  Transmission Date: 20220721
  Serious: Yes (Other)
  Sender: FDA-Public Use
  Company Number: CA-TEVA-2022-CA-2037204

PATIENT
  Sex: Male

DRUGS (4)
  1. ACETAMINOPHEN\OXYCODONE HYDROCHLORIDE [Suspect]
     Active Substance: ACETAMINOPHEN\OXYCODONE HYDROCHLORIDE
     Indication: Product used for unknown indication
     Route: 048
  2. HYDROMORPHONE HYDROCHLORIDE [Suspect]
     Active Substance: HYDROMORPHONE HYDROCHLORIDE
     Indication: Product used for unknown indication
     Route: 048
  3. OXYCODONE HYDROCHLORIDE [Suspect]
     Active Substance: OXYCODONE HYDROCHLORIDE
     Indication: Product used for unknown indication
     Route: 048
  4. OXYCONTIN [Suspect]
     Active Substance: OXYCODONE HYDROCHLORIDE
     Indication: Product used for unknown indication
     Route: 048

REACTIONS (18)
  - Anxiety [Unknown]
  - Asthenia [Unknown]
  - Constipation [Unknown]
  - Decreased appetite [Unknown]
  - Drug dependence [Unknown]
  - Drug withdrawal syndrome [Unknown]
  - Dyspepsia [Unknown]
  - Dyspnoea [Unknown]
  - Fatigue [Unknown]
  - Illness [Unknown]
  - Insomnia [Unknown]
  - Mood swings [Unknown]
  - Myalgia [Unknown]
  - Nausea [Unknown]
  - Pain [Unknown]
  - Pruritus [Unknown]
  - Somnolence [Unknown]
  - Suicidal ideation [Unknown]
